FAERS Safety Report 18749437 (Version 17)
Quarter: 2021Q4

REPORT INFORMATION
  Report Type: Report from Study
  Country: US (occurrence: US)
  Receive Date: 20210116
  Receipt Date: 20211109
  Transmission Date: 20220303
  Serious: Yes (Hospitalization, Other)
  Sender: FDA-Public Use
  Company Number: US-NOVARTISPH-NVSC2021US001934

PATIENT
  Age: 86 Year
  Sex: Female

DRUGS (14)
  1. BEOVU [Suspect]
     Active Substance: BROLUCIZUMAB-DBLL
     Indication: Neovascular age-related macular degeneration
     Dosage: UNK
     Route: 065
     Dates: start: 20191230
  2. BEOVU [Suspect]
     Active Substance: BROLUCIZUMAB-DBLL
     Dosage: UNK
     Route: 047
     Dates: start: 20201101
  3. BEOVU [Suspect]
     Active Substance: BROLUCIZUMAB-DBLL
     Dosage: 0.5 CC INJECTION (RIGHT EYE)
     Route: 047
     Dates: start: 20210201
  4. BEOVU [Suspect]
     Active Substance: BROLUCIZUMAB-DBLL
     Dosage: 0.5 CC INJECTION (RIGHT EYE)
     Route: 047
  5. BEOVU [Suspect]
     Active Substance: BROLUCIZUMAB-DBLL
     Dosage: UNK
     Route: 047
  6. BEOVU [Suspect]
     Active Substance: BROLUCIZUMAB-DBLL
     Dosage: UNK
     Route: 047
     Dates: start: 20210802
  7. BEOVU [Suspect]
     Active Substance: BROLUCIZUMAB-DBLL
     Dosage: UNK, (EVERY 8 WEEKS), (RIGHT EYE)
     Route: 047
     Dates: start: 20210927
  8. EYLEA [Suspect]
     Active Substance: AFLIBERCEPT
     Indication: Product used for unknown indication
     Dosage: UNK (LEFT EYE)
     Route: 065
  9. SYSTANE (HYPROMELLOSE 2910 (4000 MPA.S)) [Suspect]
     Active Substance: HYPROMELLOSE 2910 (4000 MPA.S)
     Indication: Product used for unknown indication
     Dosage: UNK UNK, Q3H
     Route: 047
  10. TOBADEX [Concomitant]
     Indication: Product used for unknown indication
     Dosage: UNK
     Route: 065
  11. VITAMIN B12 [Concomitant]
     Active Substance: CYANOCOBALAMIN
     Indication: Product used for unknown indication
     Dosage: UNK
     Route: 065
  12. MINERALS\VITAMINS [Concomitant]
     Active Substance: MINERALS\VITAMINS
     Indication: Product used for unknown indication
     Dosage: UNK
     Route: 065
  13. SIMVASTATIN [Concomitant]
     Active Substance: SIMVASTATIN
     Indication: Product used for unknown indication
     Dosage: UNK
     Route: 065
  14. DULOXETINE [Concomitant]
     Active Substance: DULOXETINE
     Indication: Product used for unknown indication
     Dosage: UNK
     Route: 065

REACTIONS (22)
  - Wrist fracture [Unknown]
  - Blood calcium increased [Unknown]
  - Parathyroid disorder [Not Recovered/Not Resolved]
  - Headache [Unknown]
  - Memory impairment [Unknown]
  - Thrombosis [Recovered/Resolved]
  - Cataract [Recovered/Resolved]
  - Blindness transient [Recovered/Resolved]
  - Kidney infection [Unknown]
  - Neovascular age-related macular degeneration [Unknown]
  - Disease progression [Unknown]
  - Illness [Unknown]
  - Visual acuity reduced [Unknown]
  - Ocular hyperaemia [Recovered/Resolved]
  - Fall [Unknown]
  - Fracture pain [Unknown]
  - Pernicious anaemia [Unknown]
  - Head discomfort [Unknown]
  - General physical health deterioration [Unknown]
  - Dry eye [Unknown]
  - Visual impairment [Unknown]
  - Vision blurred [Unknown]

NARRATIVE: CASE EVENT DATE: 20201101
